FAERS Safety Report 23553210 (Version 5)
Quarter: 2024Q4

REPORT INFORMATION
  Report Type: Spontaneous
  Country: US (occurrence: US)
  Receive Date: 20240222
  Receipt Date: 20241217
  Transmission Date: 20250115
  Serious: Yes (Life-Threatening, Hospitalization, Other)
  Sender: PFIZER
  Company Number: US-PFIZER INC-202400045887

PATIENT
  Age: 16 Year
  Sex: Male

DRUGS (2)
  1. XYNTHA [Suspect]
     Active Substance: ANTIHEMOPHILIC FACTOR, HUMAN RECOMBINANT RESIDUES 743-1636 DELETED
     Indication: Haemorrhage
     Dosage: GIVE 2000 IU INTRAVENOUSLY Q (EVERY) 12 HOURS PRN (AS NEEDED) BLEEDING EPISODE
     Route: 042
  2. XYNTHA [Suspect]
     Active Substance: ANTIHEMOPHILIC FACTOR, HUMAN RECOMBINANT RESIDUES 743-1636 DELETED
     Indication: Haemophilia

REACTIONS (7)
  - Splenic rupture [Unknown]
  - Shock haemorrhagic [Unknown]
  - Splenic haemorrhage [Unknown]
  - Internal haemorrhage [Unknown]
  - Myocardial injury [Unknown]
  - Fall [Unknown]
  - Product dose omission issue [Unknown]

NARRATIVE: CASE EVENT DATE: 20240101
